FAERS Safety Report 9667251 (Version 3)
Quarter: 2014Q2

REPORT INFORMATION
  Report Type: Spontaneous
  Country: US (occurrence: US)
  Receive Date: 20131104
  Receipt Date: 20140620
  Transmission Date: 20141212
  Serious: No
  Sender: FDA-Public Use
  Company Number: US-BIOGENIDEC-2013BI090480

PATIENT
  Age: 69 Year
  Sex: Female

DRUGS (7)
  1. TECFIDERA [Suspect]
     Indication: MULTIPLE SCLEROSIS
     Dates: start: 20130812
  2. TECFIDERA [Suspect]
     Indication: MULTIPLE SCLEROSIS
     Dates: start: 20130911
  3. TECFIDERA [Suspect]
     Indication: MULTIPLE SCLEROSIS
     Route: 048
     Dates: start: 201309, end: 201309
  4. TECFIDERA [Suspect]
     Indication: MULTIPLE SCLEROSIS
     Route: 048
     Dates: start: 201309, end: 201309
  5. TECFIDERA [Suspect]
     Indication: MULTIPLE SCLEROSIS
     Route: 048
     Dates: start: 20140528
  6. PEPCID [Concomitant]
  7. EPITOL [Concomitant]

REACTIONS (8)
  - Gastric disorder [Not Recovered/Not Resolved]
  - Intentional product misuse [Unknown]
  - Flushing [Recovered/Resolved]
  - Nausea [Recovered/Resolved]
  - Diarrhoea [Not Recovered/Not Resolved]
  - Abdominal pain upper [Recovered/Resolved]
  - Abdominal discomfort [Unknown]
  - Vomiting [Unknown]
